FAERS Safety Report 14377236 (Version 6)
Quarter: 2018Q1

REPORT INFORMATION
  Report Type: Spontaneous
  Country: US (occurrence: US)
  Receive Date: 20180111
  Receipt Date: 20180212
  Transmission Date: 20180509
  Serious: No
  Sender: FDA-Public Use
  Company Number: PHHY2018US003319

PATIENT
  Sex: Female

DRUGS (2)
  1. ODOMZO [Interacting]
     Active Substance: SONIDEGIB
     Indication: BASAL CELL CARCINOMA
     Route: 065
  2. ITRACONAZOLE. [Suspect]
     Active Substance: ITRACONAZOLE
     Indication: PRODUCT USED FOR UNKNOWN INDICATION
     Dosage: 200 MG, QD
     Route: 065

REACTIONS (5)
  - Pruritus [Unknown]
  - Ageusia [Unknown]
  - Myalgia [Unknown]
  - Dysgeusia [Unknown]
  - Weight decreased [Unknown]
